FAERS Safety Report 25959021 (Version 1)
Quarter: 2025Q4

REPORT INFORMATION
  Report Type: Report from Study
  Country: EU (occurrence: EU)
  Receive Date: 20251025
  Receipt Date: 20251025
  Transmission Date: 20260117
  Serious: Yes (Other)
  Sender: CELLTRION
  Company Number: None

PATIENT

DRUGS (9)
  1. USTEKINUMAB [Suspect]
     Active Substance: USTEKINUMAB
     Indication: Crohn^s disease
     Dosage: 1 DOSAGE FORM
     Route: 058
     Dates: start: 2023
  2. AVASTIN [Suspect]
     Active Substance: BEVACIZUMAB
     Indication: Dry age-related macular degeneration
     Dosage: 1 DOSAGE FORM
     Dates: start: 20250214, end: 20250214
  3. AVASTIN [Suspect]
     Active Substance: BEVACIZUMAB
     Dosage: 1 DOSAGE FORM
     Dates: start: 20250314, end: 20250314
  4. AVASTIN [Suspect]
     Active Substance: BEVACIZUMAB
     Dosage: 1 DOSAGE FORM
     Dates: start: 20250423, end: 20250423
  5. DAPAGLIFLOZIN [Concomitant]
     Active Substance: DAPAGLIFLOZIN
     Indication: Type 2 diabetes mellitus
     Dosage: 1 DOSAGE FORM, EVERY 24 HOURS
     Route: 048
  6. LOSARTAN POTASSIUM [Concomitant]
     Active Substance: LOSARTAN POTASSIUM
     Indication: Nephropathy
     Dosage: 50 MILLIGRAM, EVERY 12 HOURS
     Route: 048
  7. CARVEDILOL [Concomitant]
     Active Substance: CARVEDILOL
     Dosage: 6.25 MILLIGRAM, EVERY 12 HOURS
     Route: 048
  8. LOVASTATIN [Concomitant]
     Active Substance: LOVASTATIN
     Indication: Hypercholesterolaemia
     Dosage: 20 MILLIGRAM, EVERY 24 HOURS
     Route: 048
  9. OSSIGENO [Concomitant]

REACTIONS (3)
  - Retinal oedema [Not Recovered/Not Resolved]
  - Choroidal neovascularisation [Not Recovered/Not Resolved]
  - Therapeutic product effect decreased [Not Recovered/Not Resolved]

NARRATIVE: CASE EVENT DATE: 20250525
